FAERS Safety Report 15773402 (Version 1)
Quarter: 2018Q4

REPORT INFORMATION
  Report Type: Spontaneous
  Country: US (occurrence: US)
  Receive Date: 20181228
  Receipt Date: 20181228
  Transmission Date: 20190205
  Serious: Yes (Death)
  Sender: FDA-Public Use
  Company Number: US-MYLANLABS-2018M1096669

PATIENT
  Age: 14 Month
  Sex: Female

DRUGS (1)
  1. FENTANYL. [Suspect]
     Active Substance: FENTANYL
     Indication: PRODUCT USED FOR UNKNOWN INDICATION
     Route: 065

REACTIONS (8)
  - Brain oedema [Fatal]
  - Apnoea [Fatal]
  - Pulse absent [Fatal]
  - Toxicity to various agents [Fatal]
  - Accidental exposure to product by child [Fatal]
  - Visceral congestion [Fatal]
  - Choking [Fatal]
  - Unresponsive to stimuli [Fatal]
